FAERS Safety Report 11384662 (Version 1)
Quarter: 2015Q3

REPORT INFORMATION
  Report Type: Spontaneous
  Country: US (occurrence: US)
  Receive Date: 20150811
  Receipt Date: 20150811
  Transmission Date: 20151125
  Serious: No
  Sender: FDA-Public Use
  Company Number: US-ELI_LILLY_AND_COMPANY-US201106008931

PATIENT
  Age: 63 Year
  Sex: Male

DRUGS (4)
  1. MICATIN [Concomitant]
     Active Substance: MICONAZOLE NITRATE
  2. IBUPROFEN. [Concomitant]
     Active Substance: IBUPROFEN
     Dosage: 1000 MG, UNK
  3. LIPITOR [Concomitant]
     Active Substance: ATORVASTATIN CALCIUM
     Dosage: 20 MG, EACH EVENING
  4. CIALIS [Suspect]
     Active Substance: TADALAFIL
     Indication: ERECTILE DYSFUNCTION
     Dosage: 5 MG, QD
     Dates: start: 201104

REACTIONS (4)
  - Drug dose omission [Unknown]
  - Tinea pedis [Unknown]
  - Abnormal behaviour [Unknown]
  - Drug interaction [Unknown]
